FAERS Safety Report 12901177 (Version 2)
Quarter: 2017Q1

REPORT INFORMATION
  Report Type: Spontaneous
  Country: US (occurrence: US)
  Receive Date: 20161101
  Receipt Date: 20170113
  Transmission Date: 20170428
  Serious: Yes (Other)
  Sender: FDA-Public Use
  Company Number: US-RELYPSA-RLY2016003305

PATIENT
  Age: 78 Year
  Sex: Male

DRUGS (13)
  1. CRESTOR [Concomitant]
     Active Substance: ROSUVASTATIN CALCIUM
  2. LISINOPRIL/HYDROCHLOORTHIAZIDE [Concomitant]
  3. ASPIRIN 81 [Concomitant]
     Active Substance: ASPIRIN
  4. NEURONTIN [Concomitant]
     Active Substance: GABAPENTIN
  5. NORCO [Concomitant]
     Active Substance: ACETAMINOPHEN\HYDROCODONE BITARTRATE
  6. TRADJENTA [Concomitant]
     Active Substance: LINAGLIPTIN
  7. STARLIX [Concomitant]
     Active Substance: NATEGLINIDE
  8. KAYEXALATE [Concomitant]
     Active Substance: SODIUM POLYSTYRENE SULFONATE
  9. VELTASSA [Suspect]
     Active Substance: PATIROMER
     Indication: HYPERKALAEMIA
     Dosage: 8.4 G, QD
     Route: 048
     Dates: start: 20160310
  10. METOPROLOL TARTRATE. [Concomitant]
     Active Substance: METOPROLOL TARTRATE
  11. PROTONIX [Concomitant]
     Active Substance: PANTOPRAZOLE SODIUM
  12. VITAMIN D2 [Concomitant]
     Active Substance: ERGOCALCIFEROL
  13. FLOMAX [Concomitant]
     Active Substance: TAMSULOSIN HYDROCHLORIDE

REACTIONS (2)
  - Arteriovenous fistula operation [Unknown]
  - Dialysis [Unknown]

NARRATIVE: CASE EVENT DATE: 20160816
